FAERS Safety Report 5825653-2 (Version None)
Quarter: 2008Q3

REPORT INFORMATION
  Report Type: 
  Country: None (occurrence: None)
  Receive Date: 20080729
  Receipt Date: 20080721
  Transmission Date: 20090109
  Serious: Yes (Hospitalization)
  Sender: FDA-Public Use
  Company Number: GB-TEVA-174649ISR

PATIENT
  Age: 40 Year
  Sex: Female

DRUGS (3)
  1. LIDOCAINE [Suspect]
  2. TRIAMCINOLONE ACETONIDE [Suspect]
     Indication: CARPAL TUNNEL SYNDROME
     Route: 014
     Dates: start: 20080226, end: 20080226
  3. TRIAMCINOLONE ACETONIDE [Suspect]
     Indication: PERIARTHRITIS

REACTIONS (2)
  - MENORRHAGIA [None]
  - PELVIC PAIN [None]
